FAERS Safety Report 11376776 (Version 1)
Quarter: 2015Q3

REPORT INFORMATION
  Report Type: Spontaneous
  Country: US (occurrence: US)
  Receive Date: 20150813
  Receipt Date: 20150813
  Transmission Date: 20151125
  Serious: No
  Sender: FDA-Public Use
  Company Number: US-009507513-1508USA003676

PATIENT
  Age: 60 Year
  Sex: Female

DRUGS (1)
  1. NOXAFIL [Suspect]
     Active Substance: POSACONAZOLE
     Dosage: 100 MG 2 PILLS TWICE DAILY (2 DF, BID)
     Route: 048
     Dates: start: 201501

REACTIONS (2)
  - Localised infection [Unknown]
  - No adverse event [Unknown]

NARRATIVE: CASE EVENT DATE: 20150806
